FAERS Safety Report 4431337-8 (Version None)
Quarter: 2004Q3

REPORT INFORMATION
  Report Type: 
  Country: None (occurrence: None)
  Receive Date: 20040823
  Receipt Date: 20040823
  Transmission Date: 20050211
  Serious: Yes (Other)
  Sender: FDA-Public Use
  Company Number: None

PATIENT
  Sex: Female
  Weight: 72.5755 kg

DRUGS (1)
  1. PAXIL CR [Suspect]
     Dosage: 25 MG SID ORAL
     Route: 048
     Dates: start: 20040615, end: 20040816

REACTIONS (4)
  - ASTHENIA [None]
  - DEPRESSION [None]
  - HEADACHE [None]
  - NAUSEA [None]
